FAERS Safety Report 9262534 (Version 1)
Quarter: 2013Q2

REPORT INFORMATION
  Report Type: Spontaneous
  Country: US (occurrence: None)
  Receive Date: 20130425
  Receipt Date: 20130425
  Transmission Date: 20140414
  Serious: No
  Sender: FDA-Public Use
  Company Number: COR_00007_2013

PATIENT
  Sex: Male

DRUGS (1)
  1. CEENU [Suspect]
     Indication: BRAIN NEOPLASM
     Dosage: (210 MG 1X/6 WEEKS ORAL)
     Route: 048
     Dates: start: 20120905, end: 20130103

REACTIONS (2)
  - Brain neoplasm [None]
  - Malignant neoplasm progression [None]
